FAERS Safety Report 4975611-5 (Version None)
Quarter: 2006Q2

REPORT INFORMATION
  Report Type: 
  Country: None (occurrence: None)
  Receive Date: 20060411
  Receipt Date: 20060328
  Transmission Date: 20061013
  Serious: Yes (Hospitalization)
  Sender: FDA-Public Use
  Company Number: CNL-127313-NL

PATIENT
  Age: 43 Year
  Sex: Male

DRUGS (4)
  1. MIRTAZAPINE [Suspect]
     Indication: DEPRESSION
     Dosage: 30 MG
     Route: 048
     Dates: start: 20020122, end: 20020131
  2. CLONAZEPAM [Suspect]
     Indication: ANXIETY DISORDER
     Dosage: 3 MG
     Dates: start: 20020117
  3. CHLORPROMAZINE HYDROCHLORIDE [Suspect]
     Indication: ANXIETY DISORDER
     Dosage: 100 MG
     Dates: start: 20020117, end: 20020131
  4. VALPROATE SODIUM [Concomitant]

REACTIONS (1)
  - THROMBOCYTOPENIA [None]
